FAERS Safety Report 25916966 (Version 2)
Quarter: 2025Q4

REPORT INFORMATION
  Report Type: Spontaneous
  Country: US (occurrence: US)
  Receive Date: 20251014
  Receipt Date: 20251024
  Transmission Date: 20260117
  Serious: No
  Sender: ABBVIE
  Company Number: US-ABBVIE-6500998

PATIENT
  Sex: Female

DRUGS (1)
  1. SYNTHROID [Suspect]
     Active Substance: LEVOTHYROXINE SODIUM
     Indication: Hypothyroidism
     Dosage: STRENGTH 125 MICROGRAM
     Route: 048
     Dates: start: 20070215

REACTIONS (2)
  - Emotional distress [Unknown]
  - Gastrointestinal disorder [Unknown]
